FAERS Safety Report 7825555-6 (Version None)
Quarter: 2011Q4

REPORT INFORMATION
  Report Type: 
  Country: None (occurrence: None)
  Receive Date: 20111017
  Receipt Date: 20111006
  Transmission Date: 20120403
  Serious: Yes (Death)
  Sender: FDA-Public Use
  Company Number: 2011100043

PATIENT
  Age: 54 Year
  Sex: Female

DRUGS (10)
  1. ONSOLIS [Suspect]
     Indication: CANCER PAIN
     Dosage: TO BE TITRATED UP TO 4-200 MCG FILMS (200 MCG, UP TO 4 TIMES DAILY, BU
     Route: 002
     Dates: start: 20100129, end: 20100303
  2. PERCOCET [Concomitant]
  3. COUMADIN [Concomitant]
  4. CITALOPRAM HYDROBROMIDE [Concomitant]
  5. PREVACID [Concomitant]
  6. ONSOLIS [Suspect]
     Dosage: (600 MCG, EVERY 4 HOURS, PRIN) BU;
     Route: 002
     Dates: start: 20100304, end: 20100520
  7. OXYCONTIN [Concomitant]
  8. CYMBALTA [Concomitant]
  9. ONSOLIS [Suspect]
     Dosage: (600 MCG, EVERY 6 HOURS, PRN), BU
     Route: 002
     Dates: start: 20100521
  10. ABILIFY [Concomitant]

REACTIONS (1)
  - DEATH [None]
